FAERS Safety Report 17609991 (Version 1)
Quarter: 2020Q2

REPORT INFORMATION
  Report Type: Spontaneous
  Country: FR (occurrence: FR)
  Receive Date: 20200401
  Receipt Date: 20200401
  Transmission Date: 20200713
  Serious: Yes (Other)
  Sender: FDA-Public Use
  Company Number: FR-ACCORD-177646

PATIENT
  Age: 83 Year
  Sex: Male

DRUGS (12)
  1. FUROSEMIDE. [Suspect]
     Active Substance: FUROSEMIDE
     Indication: HYPERTENSION
     Route: 048
     Dates: start: 20140416, end: 20190801
  2. INEXIUM [Concomitant]
     Active Substance: ESOMEPRAZOLE
     Dosage: STRENGTH: 40 MG, GASTRO-RESISTANT TABLET
  3. ALDACTONE [Concomitant]
     Active Substance: SPIRONOLACTONE
     Dosage: STRENGTH: 25 MG, SCORED FILM-COATED TABLET
  4. AMIODARONE [Concomitant]
     Active Substance: AMIODARONE
  5. TAHOR [Concomitant]
     Active Substance: ATORVASTATIN CALCIUM
     Dosage: STRENGTH: 80 MG, FILM-COATED TABLET
  6. DIFFU K [Concomitant]
     Active Substance: POTASSIUM CHLORIDE
     Dosage: CAPSULE
  7. KINERET [Concomitant]
     Active Substance: ANAKINRA
     Dosage: STRENGTH: 100 MG, SOLUTION FOR INJECTION IN PRE-FILLED SYRINGE
  8. SIFROL [Concomitant]
     Active Substance: PRAMIPEXOLE
     Dosage: STRENGTH: 1.05 MG, EXTENDED RELEASE TABLET
  9. PREVISCAN [Concomitant]
     Dosage: STRENGTH: 20 MG, SCORED TABLET
  10. FUROSEMIDE. [Concomitant]
     Active Substance: FUROSEMIDE
  11. BISOCE [Concomitant]
     Active Substance: BISOPROLOL
     Dosage: STRENGTH: 2,5 MG, SCORED FILM-COATED TABLET
  12. IRBESARTAN. [Interacting]
     Active Substance: IRBESARTAN
     Indication: HYPERTENSION
     Route: 048
     Dates: end: 20190801

REACTIONS (2)
  - Renal impairment [Recovering/Resolving]
  - Drug interaction [Unknown]

NARRATIVE: CASE EVENT DATE: 201907
